FAERS Safety Report 25962514 (Version 1)
Quarter: 2025Q4

REPORT INFORMATION
  Report Type: Spontaneous
  Country: US (occurrence: None)
  Receive Date: 20251024
  Receipt Date: 20251024
  Transmission Date: 20260118
  Serious: Yes (Death)
  Sender: FDA-CTU
  Company Number: None

PATIENT
  Age: 53 Year
  Sex: Male

DRUGS (8)
  1. CABENUVA [Suspect]
     Active Substance: CABOTEGRAVIR\RILPIVIRINE
  2. DULOXETINE [Suspect]
     Active Substance: DULOXETINE
  3. OXYCODONE [Suspect]
     Active Substance: OXYCODONE
  4. DAPSONE [Suspect]
     Active Substance: DAPSONE
  5. HYDROXYZINE [Suspect]
     Active Substance: HYDROXYZINE HYDROCHLORIDE
  6. ZOLPIDEM [Suspect]
     Active Substance: ZOLPIDEM TARTRATE
  7. PREGABALIN [Suspect]
     Active Substance: PREGABALIN
  8. LIDODERM [Suspect]
     Active Substance: LIDOCAINE

REACTIONS (1)
  - Sepsis [None]

NARRATIVE: CASE EVENT DATE: 20250925
